FAERS Safety Report 20004772 (Version 1)
Quarter: 2021Q4

REPORT INFORMATION
  Report Type: Spontaneous
  Country: CA (occurrence: CA)
  Receive Date: 20211027
  Receipt Date: 20211027
  Transmission Date: 20220303
  Serious: Yes (Other)
  Sender: FDA-Public Use
  Company Number: CA-TEVA-2021-CA-1969734

PATIENT
  Age: 3 Year
  Sex: Female

DRUGS (5)
  1. ETOPOSIDE [Suspect]
     Active Substance: ETOPOSIDE
     Indication: Acute myeloid leukaemia
     Route: 065
  2. DAUNORUBICIN [Suspect]
     Active Substance: DAUNORUBICIN
     Indication: Acute myeloid leukaemia
     Route: 065
  3. CYTARABINE [Suspect]
     Active Substance: CYTARABINE
     Indication: Acute myeloid leukaemia
     Route: 042
  4. CYTARABINE [Suspect]
     Active Substance: CYTARABINE
     Route: 037
  5. FLUCONAZOLE [Concomitant]
     Active Substance: FLUCONAZOLE

REACTIONS (10)
  - Candida infection [Unknown]
  - Condition aggravated [Unknown]
  - Febrile neutropenia [Unknown]
  - Fibula fracture [Unknown]
  - Pain in extremity [Unknown]
  - Pathological fracture [Unknown]
  - Pulmonary mass [Unknown]
  - Renal abscess [Unknown]
  - Respiratory moniliasis [Unknown]
  - Systemic candida [Unknown]
